FAERS Safety Report 9799993 (Version 2)
Quarter: 2014Q1

REPORT INFORMATION
  Report Type: Spontaneous
  Country: US (occurrence: US)
  Receive Date: 20140106
  Receipt Date: 20140106
  Transmission Date: 20141002
  Serious: Yes (Hospitalization)
  Sender: FDA-Public Use
  Company Number: US-GILEAD-2010-0030463

PATIENT
  Age: 58 Year
  Sex: Female

DRUGS (14)
  1. LETAIRIS [Suspect]
     Indication: PULMONARY ARTERIAL HYPERTENSION
     Route: 048
     Dates: start: 20100618
  2. REVATIO [Concomitant]
  3. LASIX [Concomitant]
  4. FOSAMAX [Concomitant]
  5. METOPROLOL [Concomitant]
  6. MICARDIS [Concomitant]
  7. ZOCOR [Concomitant]
  8. CELEBREX [Concomitant]
  9. ULTRAM [Concomitant]
  10. LYRICA [Concomitant]
  11. TRAZODONE [Concomitant]
  12. PRILOSEC [Concomitant]
  13. FISH OIL [Concomitant]
  14. LIDODERM [Concomitant]

REACTIONS (3)
  - Oedema [Recovered/Resolved]
  - Fluid retention [Recovered/Resolved]
  - Swelling face [Recovered/Resolved]
